FAERS Safety Report 21012553 (Version 3)
Quarter: 2024Q4

REPORT INFORMATION
  Report Type: Report from Study
  Country: US (occurrence: US)
  Receive Date: 20220627
  Receipt Date: 20241003
  Transmission Date: 20250115
  Serious: Yes (Other)
  Sender: NOVARTIS
  Company Number: US-NOVARTISTESTPH-NVSC2022US146186

PATIENT
  Sex: Male
  Weight: 61.69 kg

DRUGS (7)
  1. ENTRESTO [Suspect]
     Active Substance: SACUBITRIL\VALSARTAN
     Indication: Product used for unknown indication
     Dosage: 1 DOSAGE FORM (97-103 MG), BID
     Route: 048
  2. VITAMIN C [Concomitant]
     Active Substance: ASCORBIC ACID
     Indication: Product used for unknown indication
     Dosage: 2 DOSAGE FORM, QD
     Route: 048
  3. CLOPIDOGREL BISULFATE [Concomitant]
     Active Substance: CLOPIDOGREL BISULFATE
     Indication: Product used for unknown indication
     Dosage: 1 DOSAGE FORM, QD
     Route: 048
  4. ATORVASTATIN CALCIUM [Concomitant]
     Active Substance: ATORVASTATIN CALCIUM
     Indication: Product used for unknown indication
     Dosage: 1 DOSAGE FORM, QN (AT BEDTIME)
     Route: 048
  5. ASPIRIN [Concomitant]
     Active Substance: ASPIRIN
     Indication: Product used for unknown indication
     Dosage: 1 DOSAGE FORM, QN (AT BED TIME)
     Route: 048
  6. FLOMAX [Concomitant]
     Active Substance: TAMSULOSIN HYDROCHLORIDE
     Indication: Product used for unknown indication
     Dosage: 1 DOSAGE FORM, QD
     Route: 048
  7. SILDENAFIL CITRATE [Concomitant]
     Active Substance: SILDENAFIL CITRATE
     Indication: Product used for unknown indication
     Dosage: 1 DOSAGE FORM, PRN (AS NEEDED)
     Route: 048

REACTIONS (12)
  - Cardiomyopathy [Unknown]
  - Blood pressure systolic decreased [Unknown]
  - Sinus bradycardia [Unknown]
  - Electrocardiogram abnormal [Unknown]
  - Supraventricular extrasystoles [Unknown]
  - Ventricular extrasystoles [Unknown]
  - Pain in extremity [Unknown]
  - Illness [Unknown]
  - Peripheral vascular disorder [Unknown]
  - Peripheral venous disease [Unknown]
  - Hypertensive heart disease [Unknown]
  - Conduction disorder [Unknown]
